FAERS Safety Report 18122758 (Version 1)
Quarter: 2020Q3

REPORT INFORMATION
  Report Type: Spontaneous
  Country: US (occurrence: US)
  Receive Date: 20200806
  Receipt Date: 20200806
  Transmission Date: 20201103
  Serious: Yes (Disabling, Other)
  Sender: FDA-Public Use
  Company Number: None

PATIENT
  Age: 41 Year
  Sex: Female
  Weight: 65.7 kg

DRUGS (8)
  1. TUMERIC [Concomitant]
     Active Substance: HERBALS\TURMERIC
  2. FISH OIL [Concomitant]
     Active Substance: FISH OIL
  3. ZYRTEC [Concomitant]
     Active Substance: CETIRIZINE HYDROCHLORIDE
  4. MULTI VITAMIN [Concomitant]
     Active Substance: VITAMINS
  5. MESALAMINE SUPPOSITORIES [Concomitant]
     Active Substance: MESALAMINE
  6. CEFEPIME [Suspect]
     Active Substance: CEFEPIME HYDROCHLORIDE
     Indication: MASTITIS
     Route: 042
     Dates: start: 20200716, end: 20200805
  7. CINNAMON. [Concomitant]
     Active Substance: CINNAMON
  8. TOPAMAX [Concomitant]
     Active Substance: TOPIRAMATE

REACTIONS (1)
  - Leukopenia [None]

NARRATIVE: CASE EVENT DATE: 20200805
